FAERS Safety Report 9011280 (Version 1)
Quarter: 2013Q1

REPORT INFORMATION
  Report Type: Spontaneous
  Country: US (occurrence: US)
  Receive Date: 20130109
  Receipt Date: 20130109
  Transmission Date: 20140127
  Serious: Yes (Other)
  Sender: FDA-Public Use
  Company Number: US-009507513-1004USA01710

PATIENT
  Age: 5 Year
  Sex: Male
  Weight: 16.33 kg

DRUGS (2)
  1. SINGULAIR [Suspect]
     Indication: BRONCHIAL HYPERREACTIVITY
     Dosage: 4 MG, QD
     Route: 048
     Dates: start: 20090722, end: 20090811
  2. SINGULAIR [Suspect]
     Indication: BRONCHIAL HYPERREACTIVITY

REACTIONS (7)
  - Suicidal behaviour [Unknown]
  - Abnormal behaviour [Unknown]
  - Aggression [Unknown]
  - Agitation [Unknown]
  - Physical assault [Unknown]
  - Screaming [Unknown]
  - Homicidal ideation [Unknown]
